FAERS Safety Report 6144624-2 (Version None)
Quarter: 2009Q2

REPORT INFORMATION
  Report Type: 
  Country: None (occurrence: None)
  Receive Date: 20090401
  Receipt Date: 20090324
  Transmission Date: 20091009
  Serious: Yes (Death, Hospitalization)
  Sender: FDA-Public Use
  Company Number: WAES 0903USA01900

PATIENT
  Age: 85 Year
  Sex: Female

DRUGS (6)
  1. FOSAMAX [Suspect]
     Indication: OSTEOPOROSIS
     Dosage: 5 MG/DAILY PO
     Route: 048
     Dates: start: 20040921, end: 20090127
  2. ALVO [Concomitant]
  3. AMLODIN [Concomitant]
  4. OLMETEC [Concomitant]
  5. PHOSBIRON [Concomitant]
  6. ONEALFA [Concomitant]

REACTIONS (3)
  - ANOREXIA [None]
  - GASTRIC CANCER [None]
  - MELAENA [None]
